FAERS Safety Report 17717885 (Version 1)
Quarter: 2020Q2

REPORT INFORMATION
  Report Type: Spontaneous
  Country: GB (occurrence: GB)
  Receive Date: 20200428
  Receipt Date: 20200428
  Transmission Date: 20200714
  Serious: Yes (Other)
  Sender: FDA-Public Use
  Company Number: NVSC2020GB113590

PATIENT
  Age: 32 Year
  Sex: Female

DRUGS (2)
  1. METFORMIN [Suspect]
     Active Substance: METFORMIN HYDROCHLORIDE
     Indication: TYPE 2 DIABETES MELLITUS
     Dosage: 500 MG (NUMBER OF UNITS IN THE INTERVAL-0.33)
     Route: 048
  2. METFORMIN [Suspect]
     Active Substance: METFORMIN HYDROCHLORIDE
     Dosage: 500 MG (DOSE REDUCED) (NUMBER OF UNITS IN THE INTERVAL-0.5)
     Route: 048

REACTIONS (3)
  - Palpitations [Recovering/Resolving]
  - Musculoskeletal pain [Recovering/Resolving]
  - Dyspnoea [Recovering/Resolving]
